FAERS Safety Report 5248544-7 (Version None)
Quarter: 2007Q1

REPORT INFORMATION
  Report Type: 
  Country: None (occurrence: None)
  Receive Date: 20070227
  Receipt Date: 20070215
  Transmission Date: 20070707
  Serious: Yes (Death)
  Sender: FDA-Public Use
  Company Number: JP-PFIZER INC-2007013219

PATIENT
  Age: 78 Year
  Sex: Male

DRUGS (5)
  1. SULFASALAZINE [Suspect]
  2. LANIRAPID [Concomitant]
     Route: 048
  3. LEBENIN [Concomitant]
     Route: 048
  4. FAMOTIDINE [Concomitant]
  5. PREDNISOLONE [Concomitant]

REACTIONS (1)
  - YELLOW SKIN [None]
